FAERS Safety Report 9271197 (Version 2)
Quarter: 2013Q2

REPORT INFORMATION
  Report Type: Spontaneous
  Country: FR (occurrence: FR)
  Receive Date: 20130506
  Receipt Date: 20130627
  Transmission Date: 20140414
  Serious: Yes (Hospitalization)
  Sender: FDA-Public Use
  Company Number: FR-ROCHE-1220089

PATIENT
  Age: 70 Year
  Sex: Male
  Weight: 62.5 kg

DRUGS (14)
  1. AVASTIN [Suspect]
     Indication: COLORECTAL CANCER
     Dosage: 25MG/ML
     Route: 042
     Dates: start: 20130205, end: 20130319
  2. FLUOROURACIL [Suspect]
     Indication: COLORECTAL CANCER
     Route: 065
  3. IRINOTECAN [Suspect]
     Indication: COLORECTAL CANCER
     Route: 065
  4. FOLINIC ACID [Concomitant]
     Indication: COLORECTAL CANCER
     Route: 065
  5. BRONCHODUAL [Concomitant]
     Dosage: 2-0-2
     Route: 065
  6. VENTOLINE [Concomitant]
     Dosage: 1-0-1
     Route: 065
  7. XANAX [Concomitant]
     Dosage: XANAX 0.25; 1/2-1/2-1/2
     Route: 065
  8. INEXIUM [Concomitant]
     Dosage: 0-0-1
     Route: 065
  9. KARDEGIC [Concomitant]
     Dosage: 0-0-1
     Route: 065
  10. LOXEN LP [Concomitant]
     Dosage: LOXEN LP 50; 1-0-1
     Route: 065
  11. SOLUPRED (FRANCE) [Concomitant]
     Dosage: SOLUPRED 20; 2-0-0 FOR ONE MONTH, THEN 1-0-0
     Route: 065
  12. KABIVEN [Concomitant]
     Dosage: 1200 KCAL
     Route: 065
  13. KAYEXALATE [Concomitant]
     Dosage: 1 SPOON DAILY
     Route: 065
  14. EMEND [Concomitant]

REACTIONS (4)
  - Myalgia [Recovered/Resolved]
  - Arthralgia [Recovered/Resolved]
  - Dysaesthesia [Recovered/Resolved]
  - Areflexia [Recovered/Resolved]
